FAERS Safety Report 19145454 (Version 1)
Quarter: 2021Q2

REPORT INFORMATION
  Report Type: Spontaneous
  Country: US (occurrence: US)
  Receive Date: 20210416
  Receipt Date: 20210416
  Transmission Date: 20210717
  Serious: Yes (Other)
  Sender: FDA-Public Use
  Company Number: US-ASTRAZENECA-2021A306002

PATIENT
  Age: 886 Month
  Sex: Female
  Weight: 65.8 kg

DRUGS (1)
  1. BRILINTA [Suspect]
     Active Substance: TICAGRELOR
     Route: 048

REACTIONS (9)
  - Myocardial infarction [Unknown]
  - Memory impairment [Unknown]
  - Loss of consciousness [Unknown]
  - COVID-19 [Unknown]
  - Blood test abnormal [Unknown]
  - Malaise [Unknown]
  - Cerebrovascular accident [Unknown]
  - Emphysema [Not Recovered/Not Resolved]
  - Dyspnoea [Unknown]

NARRATIVE: CASE EVENT DATE: 202002
